FAERS Safety Report 12179515 (Version 4)
Quarter: 2016Q3

REPORT INFORMATION
  Report Type: Spontaneous
  Country: US (occurrence: US)
  Receive Date: 20160315
  Receipt Date: 20160922
  Transmission Date: 20161109
  Serious: Yes (Hospitalization)
  Sender: FDA-Public Use
  Company Number: US-PFIZER INC-2016143897

PATIENT
  Age: 54 Year
  Sex: Female

DRUGS (8)
  1. IBRANCE [Suspect]
     Active Substance: PALBOCICLIB
     Dosage: 100 MG FOR TWO MONTHS
     Dates: start: 201503, end: 201506
  2. CALCIUM [Concomitant]
     Active Substance: CALCIUM
     Dosage: 500 MG, UNK
  3. ZOMETA [Concomitant]
     Active Substance: ZOLEDRONIC ACID
     Dosage: UNK
     Dates: start: 201502, end: 201512
  4. VITAMIN D [Concomitant]
     Active Substance: CHOLECALCIFEROL
     Dosage: 400 MG, UNK
     Dates: start: 201512
  5. IBRANCE [Suspect]
     Active Substance: PALBOCICLIB
     Indication: BREAST CANCER METASTATIC
     Dosage: 125 MG FOR TWO MONTHS
     Dates: start: 201502, end: 201503
  6. LETROZOLE. [Suspect]
     Active Substance: LETROZOLE
     Indication: BREAST CANCER METASTATIC
     Dosage: UNK
     Dates: start: 201502
  7. XGEVA [Concomitant]
     Active Substance: DENOSUMAB
     Dosage: UNK
  8. IBRANCE [Suspect]
     Active Substance: PALBOCICLIB
     Dosage: 75 MG, CYCLIC
     Dates: start: 201506

REACTIONS (9)
  - Diverticulitis [Unknown]
  - Alopecia [Unknown]
  - Nail disorder [Unknown]
  - Nasopharyngitis [Recovered/Resolved]
  - Decreased appetite [Unknown]
  - Anaemia [Unknown]
  - Weight increased [Unknown]
  - Diarrhoea [Unknown]
  - White blood cell count decreased [Unknown]

NARRATIVE: CASE EVENT DATE: 201503
